FAERS Safety Report 7849975-9 (Version None)
Quarter: 2011Q4

REPORT INFORMATION
  Report Type: 
  Country: None (occurrence: None)
  Receive Date: 20111026
  Receipt Date: 20111014
  Transmission Date: 20120403
  Serious: Yes (Hospitalization)
  Sender: FDA-Public Use
  Company Number: US-BAYER-201016041NA

PATIENT
  Age: 26 Year
  Sex: Female
  Weight: 74 kg

DRUGS (6)
  1. YAZ [Suspect]
     Indication: ACNE
     Route: 048
     Dates: start: 20080501, end: 20090201
  2. YASMIN [Suspect]
     Indication: ACNE
     Route: 048
     Dates: start: 20050501, end: 20061201
  3. NUVARING [Concomitant]
     Dates: start: 20091201, end: 20100301
  4. YAZ [Suspect]
     Indication: CONTRACEPTION
     Dosage: UNK
     Dates: start: 20070101, end: 20090501
  5. BISMUTH SUBSALICYLATE [Concomitant]
     Indication: ABDOMINAL PAIN UPPER
  6. YASMIN [Suspect]
     Indication: CONTRACEPTION
     Dosage: UNK
     Dates: start: 20040101, end: 20070101

REACTIONS (5)
  - BILIARY COLIC [None]
  - CHOLECYSTITIS CHRONIC [None]
  - GALLBLADDER CHOLESTEROLOSIS [None]
  - CHOLELITHIASIS [None]
  - INJURY [None]
